FAERS Safety Report 23949306 (Version 1)
Quarter: 2024Q2

REPORT INFORMATION
  Report Type: Other
  Country: US (occurrence: None)
  Receive Date: 20240607
  Receipt Date: 20240607
  Transmission Date: 20240715
  Serious: Yes (Hospitalization, Disabling)
  Sender: FDA-Public Use
  Company Number: US-ROCHE-3398937

PATIENT
  Age: 63 Year
  Sex: Female
  Weight: 57.204 kg

DRUGS (6)
  1. OCREVUS [Suspect]
     Active Substance: OCRELIZUMAB
     Indication: Secondary progressive multiple sclerosis
     Dosage: DOS: 19/DEC/2021
     Route: 042
     Dates: start: 2021
  2. OCREVUS [Suspect]
     Active Substance: OCRELIZUMAB
     Route: 065
     Dates: start: 20191024
  3. BACLOFEN [Concomitant]
     Active Substance: BACLOFEN
  4. AMLODIPINE BESYLATE [Concomitant]
     Active Substance: AMLODIPINE BESYLATE
     Indication: Hypertension
  5. GABAPENTIN [Concomitant]
     Active Substance: GABAPENTIN
  6. TETANUS IMMUNIZATION [Concomitant]

REACTIONS (8)
  - Cerebrovascular accident [Recovered/Resolved with Sequelae]
  - COVID-19 [Recovered/Resolved]
  - Carotid artery occlusion [Recovered/Resolved]
  - Speech disorder [Recovered/Resolved]
  - Dysgraphia [Not Recovered/Not Resolved]
  - Hypokinesia [Unknown]
  - Memory impairment [Not Recovered/Not Resolved]
  - Weight decreased [Unknown]

NARRATIVE: CASE EVENT DATE: 20230601
